FAERS Safety Report 6014275-9 (Version None)
Quarter: 2008Q4

REPORT INFORMATION
  Report Type: 
  Country: None (occurrence: None)
  Receive Date: 20081219
  Receipt Date: 20080311
  Transmission Date: 20090506
  Serious: No
  Sender: FDA-Public Use
  Company Number: A0716273A

PATIENT
  Age: 45 Year
  Sex: Male

DRUGS (2)
  1. AVODART [Suspect]
  2. FLOMAX [Suspect]

REACTIONS (3)
  - DRUG INEFFECTIVE [None]
  - MICTURITION URGENCY [None]
  - MIDDLE INSOMNIA [None]
